FAERS Safety Report 16106952 (Version 1)
Quarter: 2019Q1

REPORT INFORMATION
  Report Type: Spontaneous
  Country: US (occurrence: US)
  Receive Date: 20190322
  Receipt Date: 20190322
  Transmission Date: 20190418
  Serious: Yes (Hospitalization)
  Sender: FDA-Public Use
  Company Number: US-TEVA-2019-US-1028110

PATIENT
  Sex: Female

DRUGS (1)
  1. CLONAZEPAM ACTAVIS [Suspect]
     Active Substance: CLONAZEPAM
     Indication: SEIZURE
     Dosage: 5 MILLIGRAM DAILY; 2 MG ( 2 TABLETS OF CLONAZEPAM TABLETS 1 MG) AT MORNING+ 3 MG AT NIGHT (3 TABLETS
     Route: 065

REACTIONS (4)
  - Product substitution issue [Unknown]
  - Seizure [Recovered/Resolved]
  - Vision blurred [Unknown]
  - Drug ineffective [Unknown]
